FAERS Safety Report 11938795 (Version 1)
Quarter: 2016Q1

REPORT INFORMATION
  Report Type: Spontaneous
  Country: DK (occurrence: DK)
  Receive Date: 20160122
  Receipt Date: 20160122
  Transmission Date: 20160526
  Serious: Yes (Life-Threatening, Hospitalization)
  Sender: FDA-Public Use
  Company Number: DK-TEVA-625280ACC

PATIENT
  Age: 79 Year
  Sex: Male
  Weight: 90 kg

DRUGS (2)
  1. ISOPTIN [Suspect]
     Active Substance: VERAPAMIL HYDROCHLORIDE
     Indication: ATRIAL FIBRILLATION
     Dosage: 240 MILLIGRAM DAILY; STYRKE: 240 MG
     Route: 048
     Dates: start: 1985
  2. BICALUTAMIDE TEVA [Suspect]
     Active Substance: BICALUTAMIDE
     Indication: PROSTATE CANCER
     Dosage: 150 MILLIGRAM DAILY; STYRKE: 150 MG
     Route: 048
     Dates: start: 20150929

REACTIONS (4)
  - Dyspnoea exertional [Recovering/Resolving]
  - Painful respiration [Recovered/Resolved]
  - Bradycardia [Recovering/Resolving]
  - Pneumonia [Recovering/Resolving]

NARRATIVE: CASE EVENT DATE: 20151001
